FAERS Safety Report 24272275 (Version 3)
Quarter: 2024Q4

REPORT INFORMATION
  Report Type: Spontaneous
  Country: DE (occurrence: DE)
  Receive Date: 20240902
  Receipt Date: 20241128
  Transmission Date: 20250114
  Serious: Yes (Hospitalization, Other)
  Sender: AUROBINDO
  Company Number: DE-UCBSA-2024041560

PATIENT
  Age: 25 Year
  Sex: Female

DRUGS (46)
  1. DIAZEPAM [Suspect]
     Active Substance: DIAZEPAM
     Indication: Status epilepticus
     Dosage: UNK
     Route: 065
  2. EVEROLIMUS [Suspect]
     Active Substance: EVEROLIMUS
     Indication: Lennox-Gastaut syndrome
     Dosage: 5 MILLIGRAM
     Route: 065
  3. EVEROLIMUS [Suspect]
     Active Substance: EVEROLIMUS
     Indication: Tuberous sclerosis complex
     Dosage: 2.5 MILLIGRAM, ONCE A DAY
     Route: 065
  4. EVEROLIMUS [Suspect]
     Active Substance: EVEROLIMUS
     Indication: Seizure
     Dosage: 2.5 MILLIGRAM, ONCE A DAY
     Route: 065
  5. FENFLURAMINE HYDROCHLORIDE [Suspect]
     Active Substance: FENFLURAMINE HYDROCHLORIDE
     Indication: Status epilepticus
     Dosage: 42 MILLIGRAM
  6. FENFLURAMINE HYDROCHLORIDE [Suspect]
     Active Substance: FENFLURAMINE HYDROCHLORIDE
     Indication: Lennox-Gastaut syndrome
     Dosage: UNK
     Dates: start: 2022
  7. FENFLURAMINE HYDROCHLORIDE [Suspect]
     Active Substance: FENFLURAMINE HYDROCHLORIDE
     Indication: Tuberous sclerosis complex
     Dosage: 21 MILLIGRAM, ONCE A DAY
  8. LACOSAMIDE [Suspect]
     Active Substance: LACOSAMIDE
     Indication: Lennox-Gastaut syndrome
     Dosage: 500 MILLIGRAM, ONCE A DAY
     Route: 065
     Dates: start: 2010
  9. LACOSAMIDE [Suspect]
     Active Substance: LACOSAMIDE
     Indication: Tuberous sclerosis complex
     Dosage: 500 MILLIGRAM, ONCE A DAY
     Route: 065
     Dates: start: 2016
  10. LACOSAMIDE [Suspect]
     Active Substance: LACOSAMIDE
     Indication: Seizure
     Dosage: 500 MILLIGRAM, ONCE A DAY
     Route: 065
     Dates: start: 2020
  11. LACOSAMIDE [Suspect]
     Active Substance: LACOSAMIDE
     Dosage: 400 MILLIGRAM, ONCE A DAY
     Route: 065
     Dates: start: 2023
  12. LEVETIRACETAM [Suspect]
     Active Substance: LEVETIRACETAM
     Indication: Seizure
     Dosage: 3000 MILLIGRAM, ONCE A DAY
     Route: 065
     Dates: start: 2010, end: 2020
  13. MIDAZOLAM [Suspect]
     Active Substance: MIDAZOLAM
     Indication: Seizure
     Dosage: UNK
     Route: 065
  14. PREGABALIN [Suspect]
     Active Substance: PREGABALIN
     Indication: Seizure
     Dosage: UNK
     Route: 065
  15. PREGABALIN [Suspect]
     Active Substance: PREGABALIN
     Indication: Status epilepticus
  16. TOPIRAMATE [Suspect]
     Active Substance: TOPIRAMATE
     Indication: Lennox-Gastaut syndrome
     Dosage: 900 MILLIGRAM/DAY
     Route: 065
  17. TOPIRAMATE [Suspect]
     Active Substance: TOPIRAMATE
     Indication: Tuberous sclerosis complex
     Dosage: 400 MILLIGRAM, ONCE A DAY
     Route: 065
     Dates: start: 2000
  18. TOPIRAMATE [Suspect]
     Active Substance: TOPIRAMATE
     Indication: Status epilepticus
     Dosage: 400 MILLIGRAM, ONCE A DAY
     Route: 065
     Dates: start: 2022
  19. TOPIRAMATE [Suspect]
     Active Substance: TOPIRAMATE
     Indication: Status epilepticus
  20. TOPIRAMATE [Suspect]
     Active Substance: TOPIRAMATE
     Indication: Seizure
  21. ZONISAMIDE [Suspect]
     Active Substance: ZONISAMIDE
     Indication: Seizure
     Dosage: UNK
     Route: 065
  22. ZONISAMIDE [Concomitant]
     Active Substance: ZONISAMIDE
     Indication: Status epilepticus
     Dosage: UNK
     Route: 065
  23. VIGABATRIN [Suspect]
     Active Substance: VIGABATRIN
     Indication: Seizure
     Dosage: 900 MILLIGRAM, ONCE A DAY
     Route: 065
     Dates: start: 1988
  24. SULTHIAME [Suspect]
     Active Substance: SULTHIAME
     Indication: Seizure
     Dosage: 500 MILLIGRAM
     Route: 065
     Dates: start: 2000
  25. SULTHIAME [Suspect]
     Active Substance: SULTHIAME
     Indication: Status epilepticus
  26. METHSUXIMIDE [Suspect]
     Active Substance: METHSUXIMIDE
     Indication: Seizure
     Dosage: 375 MILLIGRAM, ONCE A DAY
     Route: 065
  27. PHENYTOIN [Suspect]
     Active Substance: PHENYTOIN
     Indication: Seizure
     Dosage: 1500 MILLIGRAM, ONCE A DAY
     Route: 065
     Dates: start: 2008, end: 2020
  28. PHENYTOIN [Suspect]
     Active Substance: PHENYTOIN
     Dosage: 1.5 GRAM, RECEIVED LOADING DOSE OF 1.5G OVER 30 MIN
     Route: 065
     Dates: start: 2022, end: 2022
  29. PHENYTOIN [Suspect]
     Active Substance: PHENYTOIN
     Dosage: 750 MILLIGRAM,750MG OVER 12 H
     Route: 065
     Dates: start: 2022, end: 2022
  30. PHENOBARBITAL [Suspect]
     Active Substance: PHENOBARBITAL
     Indication: Lennox-Gastaut syndrome
     Dosage: 200 MILLIGRAM, ONCE A DAY
     Route: 065
  31. PHENOBARBITAL [Suspect]
     Active Substance: PHENOBARBITAL
     Indication: Status epilepticus
     Dosage: ADDITIONAL DOSES OF PB
     Route: 065
  32. PHENOBARBITAL [Suspect]
     Active Substance: PHENOBARBITAL
     Indication: Tuberous sclerosis complex
  33. VALPROIC ACID [Suspect]
     Active Substance: VALPROIC ACID
     Indication: Seizure
     Dosage: 1500 MILLIGRAM, ONCE A DAY
     Route: 065
     Dates: start: 2010
  34. VALPROIC ACID [Suspect]
     Active Substance: VALPROIC ACID
     Dosage: 1.2 GRAM, ONCE A DAY
     Route: 065
     Dates: start: 2022
  35. ETHOSUXIMIDE [Concomitant]
     Active Substance: ETHOSUXIMIDE
     Indication: Status epilepticus
     Dosage: UNK
     Route: 065
  36. PRIMIDONE [Suspect]
     Active Substance: PRIMIDONE
     Indication: Status epilepticus
     Dosage: UNK
     Route: 065
  37. CLOBAZAM [Suspect]
     Active Substance: CLOBAZAM
     Indication: Status epilepticus
     Dosage: 20 MILLIGRAM, ONCE A DAY
     Route: 065
  38. RUFINAMIDE [Suspect]
     Active Substance: RUFINAMIDE
     Indication: Status epilepticus
     Dosage: 3200 MILLIGRAM, ONCE A DAY
     Route: 065
     Dates: start: 2015
  39. CANNABIDIOL [Suspect]
     Active Substance: CANNABIDIOL
     Indication: Status epilepticus
     Dosage: 1580 MILLIGRAM, ONCE A DAY
     Route: 065
     Dates: start: 2020
  40. BRIVARACETAM [Suspect]
     Active Substance: BRIVARACETAM
     Indication: Status epilepticus
     Dosage: 100 MILLIGRAM, ONCE A DAY
     Route: 065
     Dates: start: 2020, end: 2022
  41. PERAMPANEL [Suspect]
     Active Substance: PERAMPANEL
     Indication: Status epilepticus
     Dosage: 12 MILLIGRAM, ONCE A DAY
     Route: 065
     Dates: start: 2022, end: 2023
  42. PHENOBARBITAL [Suspect]
     Active Substance: PHENOBARBITAL
     Indication: Status epilepticus
     Dosage: 600 MILLIGRAM, ONCE A DAY
     Route: 065
     Dates: start: 2022
  43. PROPOFOL [Suspect]
     Active Substance: PROPOFOL
     Indication: Induction of anaesthesia
     Dosage: UNK
     Route: 065
     Dates: start: 20221103, end: 20221109
  44. ESKETAMINE [Suspect]
     Active Substance: ESKETAMINE
     Indication: Status epilepticus
     Dosage: UNK
     Route: 065
     Dates: start: 2022
  45. FENFLURAMINE [Suspect]
     Active Substance: FENFLURAMINE
     Indication: Status epilepticus
     Dosage: UNK
     Route: 065
  46. ISOFLURANE [Suspect]
     Active Substance: ISOFLURANE
     Indication: Status epilepticus
     Dosage: UNK
     Route: 065

REACTIONS (7)
  - Seizure [Unknown]
  - Multiple-drug resistance [Unknown]
  - Pyrexia [Not Recovered/Not Resolved]
  - Prescribed overdose [Unknown]
  - Product use in unapproved indication [Unknown]
  - Drug ineffective [Unknown]
  - Drug resistance [Unknown]
